FAERS Safety Report 23621649 (Version 1)
Quarter: 2024Q1

REPORT INFORMATION
  Report Type: Report from Study
  Country: CA (occurrence: CA)
  Receive Date: 20240312
  Receipt Date: 20240312
  Transmission Date: 20240409
  Serious: Yes (Other)
  Sender: FDA-Public Use
  Company Number: CA-GLAXOSMITHKLINE-CA2023143096

PATIENT

DRUGS (2)
  1. MEPOLIZUMAB [Suspect]
     Active Substance: MEPOLIZUMAB
     Indication: Asthma
     Dosage: 100 MG, Q4W
     Route: 058
     Dates: start: 20191219
  2. MEPOLIZUMAB [Suspect]
     Active Substance: MEPOLIZUMAB
     Dosage: 100 MG, Q4W
     Route: 058
     Dates: start: 20191219

REACTIONS (19)
  - Nephrolithiasis [Unknown]
  - Cerebrovascular accident [Unknown]
  - Renal failure [Unknown]
  - Ureteral stent removal [Unknown]
  - Thoracic vertebral fracture [Unknown]
  - Productive cough [Unknown]
  - Sinusitis [Recovered/Resolved]
  - Nasopharyngitis [Recovered/Resolved]
  - Amnesia [Unknown]
  - Upper limb fracture [Unknown]
  - Blood pressure increased [Unknown]
  - Neck pain [Not Recovered/Not Resolved]
  - Device occlusion [Unknown]
  - Shoulder fracture [Unknown]
  - Contusion [Unknown]
  - Pain in extremity [Unknown]
  - Pain [Unknown]
  - Fall [Unknown]
  - Fracture [Unknown]

NARRATIVE: CASE EVENT DATE: 20240219
